FAERS Safety Report 6288180-7 (Version None)
Quarter: 2009Q3

REPORT INFORMATION
  Report Type: 
  Country: None (occurrence: None)
  Receive Date: 20090729
  Receipt Date: 20090717
  Transmission Date: 20100115
  Serious: Yes (Disabling)
  Sender: FDA-Public Use
  Company Number: PHHY2009IT29801

PATIENT
  Age: 56 Year
  Sex: Male

DRUGS (3)
  1. ZOMETA [Suspect]
     Indication: RENAL CELL CARCINOMA
     Dosage: 1 DF, QMO
     Route: 042
     Dates: start: 20070301, end: 20090401
  2. ZOMETA [Suspect]
     Indication: METASTASES TO BONE
  3. SUTENT [Concomitant]
     Indication: RENAL CELL CARCINOMA
     Dosage: 1 DF/DAY
     Route: 048
     Dates: start: 20070301

REACTIONS (3)
  - BONE DISORDER [None]
  - OSTEONECROSIS [None]
  - PAIN [None]
